FAERS Safety Report 7049966-4 (Version None)
Quarter: 2010Q4

REPORT INFORMATION
  Report Type: 
  Country: None (occurrence: None)
  Receive Date: 20101018
  Receipt Date: 20101005
  Transmission Date: 20110411
  Serious: Yes (Hospitalization, Other)
  Sender: FDA-Public Use
  Company Number: PHHY2010US67534

PATIENT
  Sex: Female
  Weight: 101.13 kg

DRUGS (6)
  1. VOLTAREN [Suspect]
     Indication: ARTHRITIS
     Dosage: 75 MG, BID
     Dates: start: 20080311, end: 20080517
  2. CELEBREX [Suspect]
     Indication: RHEUMATOID ARTHRITIS
     Dosage: UNK
     Route: 048
  3. ARTHROTEC [Suspect]
     Indication: RHEUMATOID ARTHRITIS
     Dosage: 50MG/200MCG, BID
     Route: 048
     Dates: start: 20080101, end: 20100902
  4. THYROID TAB [Concomitant]
     Dosage: 90 MG, UNK
  5. POTASSIUM [Concomitant]
     Dosage: UNK
  6. CELEXA [Concomitant]

REACTIONS (16)
  - ABDOMINAL DISCOMFORT [None]
  - ABDOMINAL PAIN UPPER [None]
  - BONE PAIN [None]
  - BRONCHITIS [None]
  - DIARRHOEA [None]
  - DYSPNOEA [None]
  - FEELING ABNORMAL [None]
  - GASTRIC ULCER [None]
  - GASTROENTERITIS [None]
  - GASTROOESOPHAGEAL REFLUX DISEASE [None]
  - GOUT [None]
  - ILEUS [None]
  - MALAISE [None]
  - OEDEMA PERIPHERAL [None]
  - PYREXIA [None]
  - SURGERY [None]
